FAERS Safety Report 12659659 (Version 1)
Quarter: 2016Q3

REPORT INFORMATION
  Report Type: Spontaneous
  Country: US (occurrence: US)
  Receive Date: 20160817
  Receipt Date: 20160817
  Transmission Date: 20161109
  Serious: No
  Sender: FDA-Public Use
  Company Number: US-BAYER-2016-150803

PATIENT
  Age: 69 Year
  Sex: Female
  Weight: 72.56 kg

DRUGS (1)
  1. MIRALAX [Suspect]
     Active Substance: POLYETHYLENE GLYCOL 3350
     Dosage: 0.5 DF, BID
     Route: 048
     Dates: start: 2016

REACTIONS (2)
  - Product use issue [None]
  - Glycosylated haemoglobin decreased [None]

NARRATIVE: CASE EVENT DATE: 2016
